FAERS Safety Report 21194129 (Version 5)
Quarter: 2022Q4

REPORT INFORMATION
  Report Type: Spontaneous
  Country: ES (occurrence: ES)
  Receive Date: 20220810
  Receipt Date: 20221126
  Transmission Date: 20230112
  Serious: Yes (Hospitalization, Other)
  Sender: FDA-Public Use
  Company Number: ES-KRKA-ES2022K09070LIT

PATIENT

DRUGS (19)
  1. ATORVASTATIN [Suspect]
     Active Substance: ATORVASTATIN
     Indication: Dyslipidaemia
     Dosage: 40 MG, 1X PER DAY, 0-0-1
     Route: 065
  2. AMLODIPINE [Suspect]
     Active Substance: AMLODIPINE BESYLATE
     Indication: Hypertension
     Dosage: 5 MG, 1X PER DAY, 0-0-1
     Route: 065
  3. ACENOCOUMAROL [Suspect]
     Active Substance: ACENOCOUMAROL
     Indication: Anticoagulant therapy
     Dosage: UNK
     Route: 065
     Dates: start: 2013
  4. APIXABAN [Suspect]
     Active Substance: APIXABAN
     Indication: Product used for unknown indication
     Dosage: 1-0-1
     Route: 065
     Dates: start: 202201, end: 202203
  5. METILDIGOXIN [Suspect]
     Active Substance: METILDIGOXIN
     Indication: Product used for unknown indication
     Dosage: 1-0-0
     Route: 065
     Dates: start: 202201, end: 202202
  6. METILDIGOXIN [Suspect]
     Active Substance: METILDIGOXIN
     Dosage: 1-0-0
     Route: 065
     Dates: start: 202201, end: 202204
  7. METILDIGOXIN [Suspect]
     Active Substance: METILDIGOXIN
     Dosage: 0.1 MG (1-0-0)
     Route: 065
  8. BRINZOLAMIDE [Suspect]
     Active Substance: BRINZOLAMIDE
     Indication: Product used for unknown indication
     Dosage: 10 MG COL (1-0-1)
     Route: 065
     Dates: start: 202201, end: 202204
  9. BETAMETHASONE\CALCIPOTRIENE [Suspect]
     Active Substance: BETAMETHASONE\CALCIPOTRIENE
     Indication: Product used for unknown indication
     Dosage: 50 MCG/0.5 MG/G GEL AND FOAM
     Route: 065
     Dates: start: 202201, end: 202204
  10. CHOLECALCIFEROL [Suspect]
     Active Substance: CHOLECALCIFEROL
     Indication: Product used for unknown indication
     Dosage: 25000 IU, PER MONTH
     Route: 065
  11. ENALAPRIL [Suspect]
     Active Substance: ENALAPRIL
     Indication: Product used for unknown indication
     Dosage: 1/2-0-1/ 2
     Route: 065
     Dates: start: 202201, end: 202204
  12. EPLERENONE [Suspect]
     Active Substance: EPLERENONE
     Indication: Product used for unknown indication
     Dosage: 1/2-0-0
     Route: 065
     Dates: start: 202201, end: 202204
  13. EPLERENONE [Suspect]
     Active Substance: EPLERENONE
     Dosage: INCREASED TO 1 TABLET PER DAY
     Route: 065
  14. EPLERENONE [Suspect]
     Active Substance: EPLERENONE
     Dosage: 0.5 MG (1/2-0-0)
     Route: 065
  15. FUROSEMIDE [Suspect]
     Active Substance: FUROSEMIDE
     Indication: Product used for unknown indication
     Dosage: 1-0-1/2
     Route: 065
     Dates: start: 202201, end: 202204
  16. IBANDRONIC ACID [Suspect]
     Active Substance: IBANDRONIC ACID
     Indication: Product used for unknown indication
     Dosage: 150 MG (1-0-0)
     Route: 065
     Dates: start: 202201, end: 202204
  17. MOMETASONE [Suspect]
     Active Substance: MOMETASONE
     Indication: Product used for unknown indication
     Dosage: 0.1% OINTMENT
     Route: 065
     Dates: start: 202201, end: 202204
  18. OMEPRAZOLE [Suspect]
     Active Substance: OMEPRAZOLE
     Indication: Product used for unknown indication
     Dosage: 1-0-0
     Route: 065
  19. ACETAMINOPHEN [Suspect]
     Active Substance: ACETAMINOPHEN
     Indication: Product used for unknown indication
     Dosage: PARACETAMOL ON DEMAND, WITH ACENOCOUMAROL BEING SUSPENDED , AS NEEDED
     Route: 065

REACTIONS (8)
  - Wound haemorrhage [Unknown]
  - Bradycardia [Unknown]
  - Off label use [Unknown]
  - Haematoma [Unknown]
  - Dizziness [Unknown]
  - Dyspnoea [Unknown]
  - Medication error [Unknown]
  - Therapeutic product effect decreased [Unknown]

NARRATIVE: CASE EVENT DATE: 20220201
